FAERS Safety Report 8504227 (Version 2)
Quarter: 2012Q4

REPORT INFORMATION
  Report Type: 
  Country: IL (occurrence: US)
  Receive Date: 20120411
  Receipt Date: 20121018
  Transmission Date: 20130627
  Serious: Yes (Hospitalization, Other)
  Sender: FDA-Public Use
  Company Number: IL-WATSON-2012-05943

PATIENT
  Age: 3 Day

DRUGS (2)
  1. TOPIRAMATE [Suspect]
     Indication: FOETAL EXPOSURE DURING PREGNANCY
     Dosage: 400 mg, daily
     Route: 064
  2. SIMILAC [Suspect]
     Indication: BOTTLE FEEDING
     Dosage: UNK
     Route: 048

REACTIONS (4)
  - Hypocalcaemia [Unknown]
  - Convulsion neonatal [Recovered/Resolved]
  - Foetal exposure during pregnancy [Unknown]
  - Maternal drugs affecting foetus [None]
